FAERS Safety Report 16465966 (Version 5)
Quarter: 2019Q3

REPORT INFORMATION
  Report Type: Spontaneous
  Country: EG (occurrence: EG)
  Receive Date: 20190621
  Receipt Date: 20190829
  Transmission Date: 20191004
  Serious: Yes (Life-Threatening, Hospitalization, Other)
  Sender: FDA-Public Use
  Company Number: PHHY2019EG143169

PATIENT
  Age: 37 Year
  Sex: Male
  Weight: 84 kg

DRUGS (1)
  1. COSENTYX [Suspect]
     Active Substance: SECUKINUMAB
     Indication: ANKYLOSING SPONDYLITIS
     Dosage: 150 MG, QW
     Route: 058
     Dates: start: 20190528, end: 20190528

REACTIONS (22)
  - Red cell distribution width increased [Unknown]
  - Hepatosplenomegaly [Recovered/Resolved]
  - Monocyte count increased [Unknown]
  - Granulomatous liver disease [Unknown]
  - Mean platelet volume increased [Unknown]
  - Bile duct pressure increased [Recovered/Resolved]
  - Fatigue [Recovered/Resolved]
  - Hepatic cyst [Recovered/Resolved]
  - Bone marrow disorder [Unknown]
  - Pyrexia [Recovered/Resolved]
  - Jaundice [Recovered/Resolved]
  - Muscle atrophy [Recovering/Resolving]
  - Sarcoidosis [Unknown]
  - C-reactive protein increased [Unknown]
  - Pneumonia [Recovered/Resolved]
  - Hepatic steatosis [Recovered/Resolved]
  - Plasma cells increased [Unknown]
  - Primary biliary cholangitis [Unknown]
  - Chromaturia [Recovering/Resolving]
  - Pleural effusion [Recovered/Resolved]
  - Myelocyte count increased [Unknown]
  - Serum ferritin increased [Unknown]

NARRATIVE: CASE EVENT DATE: 20190529
